FAERS Safety Report 6694406-8 (Version None)
Quarter: 2010Q2

REPORT INFORMATION
  Report Type: 
  Country: None (occurrence: None)
  Receive Date: 20100423
  Receipt Date: 20100412
  Transmission Date: 20101027
  Serious: Yes (Other)
  Sender: FDA-Public Use
  Company Number: CA-JNJFOC-20100403946

PATIENT
  Sex: Male
  Weight: 65.1 kg

DRUGS (15)
  1. REMICADE [Suspect]
     Indication: COLITIS ULCERATIVE
     Dosage: 5TH INFUSION
     Route: 042
  2. REMICADE [Suspect]
     Route: 042
  3. REMICADE [Suspect]
     Route: 042
  4. REMICADE [Suspect]
     Route: 042
  5. REMICADE [Suspect]
     Route: 042
  6. TYLENOL-500 [Concomitant]
     Indication: PREMEDICATION
     Route: 048
  7. PREDNISOLONE [Concomitant]
  8. METHOTREXATE [Concomitant]
  9. ISONIAZID [Concomitant]
  10. VITAMIN B6 [Concomitant]
  11. ASPIRIN [Concomitant]
  12. NORVASC [Concomitant]
  13. CALCIUM [Concomitant]
  14. PANTOPRAZOLE [Concomitant]
  15. MICARDIS [Concomitant]

REACTIONS (5)
  - DIZZINESS [None]
  - GAIT DISTURBANCE [None]
  - LETHARGY [None]
  - NERVOUS SYSTEM DISORDER [None]
  - VISION BLURRED [None]
